FAERS Safety Report 9841665 (Version 1)
Quarter: 2013Q4

REPORT INFORMATION
  Report Type: Spontaneous
  Country: US (occurrence: None)
  Receive Date: 20131219
  Receipt Date: 20131219
  Transmission Date: 20140711
  Serious: Yes (Other)
  Sender: FDA-Public Use
  Company Number: 163-20785-13062176

PATIENT
  Age: 61 Year
  Sex: Female
  Weight: 113.85 kg

DRUGS (10)
  1. THALOMID [Suspect]
     Indication: MYELOFIBROSIS
     Dosage: 1 IN 1 D
     Route: 048
     Dates: start: 20120404
  2. METFORMIN [Concomitant]
  3. PREDNISONE [Concomitant]
  4. ZYRTEC [Concomitant]
  5. FUROSEMIDE [Concomitant]
  6. ATENOLOL [Concomitant]
  7. GABAPENTIN [Concomitant]
  8. FERROUS GLUCONATE [Concomitant]
  9. NORVASC [Concomitant]
  10. FLUTAMIDE [Concomitant]

REACTIONS (2)
  - Neutropenia [None]
  - Drug ineffective [None]
